FAERS Safety Report 16997856 (Version 1)
Quarter: 2019Q4

REPORT INFORMATION
  Report Type: Spontaneous
  Country: US (occurrence: US)
  Receive Date: 20191105
  Receipt Date: 20191105
  Transmission Date: 20200122
  Serious: Yes (Life-Threatening, Hospitalization, Disabling)
  Sender: FDA-Public Use
  Company Number: None

PATIENT
  Age: 29 Year
  Sex: Female
  Weight: 76.5 kg

DRUGS (3)
  1. WELLBUTRIN [Concomitant]
     Active Substance: BUPROPION HYDROCHLORIDE
  2. LAMICTAL [Suspect]
     Active Substance: LAMOTRIGINE
     Indication: DEPRESSION
     Dates: start: 20190513, end: 20190528
  3. MULTIPLE VITAMINS [Concomitant]
     Active Substance: VITAMINS

REACTIONS (4)
  - Hypoxia [None]
  - Pharyngitis streptococcal [None]
  - Haemophagocytic lymphohistiocytosis [None]
  - Ejection fraction decreased [None]

NARRATIVE: CASE EVENT DATE: 20190522
